FAERS Safety Report 14073143 (Version 4)
Quarter: 2018Q1

REPORT INFORMATION
  Report Type: Report from Study
  Country: US (occurrence: US)
  Receive Date: 20171011
  Receipt Date: 20180116
  Transmission Date: 20180508
  Serious: Yes (Hospitalization, Other)
  Sender: FDA-Public Use
  Company Number: US-BAYER-2017-164287

PATIENT
  Age: 71 Year
  Sex: Male

DRUGS (2)
  1. NEXAVAR [Suspect]
     Active Substance: SORAFENIB
     Indication: HEPATOCELLULAR CARCINOMA
     Dosage: 400 MG, BID
     Route: 048
     Dates: start: 20170817, end: 20170922
  2. NEXAVAR [Suspect]
     Active Substance: SORAFENIB
     Indication: HEPATOCELLULAR CARCINOMA
     Dosage: 400 MG, BID
     Route: 048
     Dates: start: 20171024, end: 20171031

REACTIONS (19)
  - Diarrhoea [Not Recovered/Not Resolved]
  - Cellulitis [Recovered/Resolved]
  - Anger [Not Recovered/Not Resolved]
  - Dry skin [None]
  - Decreased appetite [None]
  - Nausea [Recovered/Resolved]
  - Fatigue [Recovering/Resolving]
  - Dry skin [Not Recovered/Not Resolved]
  - Myocardial infarction [None]
  - Hallucination [Recovered/Resolved]
  - Musculoskeletal disorder [None]
  - Decubitus ulcer [Not Recovered/Not Resolved]
  - Dry skin [Not Recovered/Not Resolved]
  - Diarrhoea [None]
  - Photopsia [None]
  - Irritability [Not Recovered/Not Resolved]
  - Fatigue [Not Recovered/Not Resolved]
  - Nausea [Recovering/Resolving]
  - Decreased appetite [Not Recovered/Not Resolved]

NARRATIVE: CASE EVENT DATE: 2017
